FAERS Safety Report 7617941-4 (Version None)
Quarter: 2011Q3

REPORT INFORMATION
  Report Type: 
  Country: None (occurrence: None)
  Receive Date: 20110718
  Receipt Date: 20110706
  Transmission Date: 20111222
  Serious: Yes (Other)
  Sender: FDA-Public Use
  Company Number: PHHY2010CA22484

PATIENT
  Sex: Female

DRUGS (1)
  1. SANDOSTATIN LAR [Suspect]
     Indication: ACROMEGALY
     Dosage: 30 MG, EVERY 4 WEEKS
     Route: 030
     Dates: start: 20041101

REACTIONS (5)
  - INTRACRANIAL ANEURYSM [None]
  - BIOPSY THYROID GLAND [None]
  - HEADACHE [None]
  - VERTIGO [None]
  - AURA [None]
